FAERS Safety Report 5621640-8 (Version None)
Quarter: 2008Q1

REPORT INFORMATION
  Report Type: 
  Country: None (occurrence: None)
  Receive Date: 20080206
  Receipt Date: 20080125
  Transmission Date: 20080703
  Serious: Yes (Disabling, Other)
  Sender: FDA-Public Use
  Company Number: 2008AP000293

PATIENT
  Age: 85 Year
  Sex: Female

DRUGS (4)
  1. FLUPHENAZINE DECANOATE [Suspect]
     Indication: PSYCHOTIC DISORDER
     Dosage: 25 MG/ML; 45 MG/ML
     Dates: start: 20070901
  2. RISPERIDONE [Concomitant]
  3. OLANZAPINE [Concomitant]
  4. BENZTROPEINE [Concomitant]

REACTIONS (3)
  - DEPRESSION [None]
  - LETHARGY [None]
  - TREMOR [None]
